FAERS Safety Report 4332782-1 (Version None)
Quarter: 2004Q1

REPORT INFORMATION
  Report Type: 
  Country: None (occurrence: None)
  Receive Date: 20040330
  Receipt Date: 20040316
  Transmission Date: 20041129
  Serious: Yes (Hospitalization)
  Sender: FDA-Public Use
  Company Number: 2004-113542-NL

PATIENT
  Age: 54 Year
  Sex: Male

DRUGS (2)
  1. MIRTAZAPINE [Suspect]
     Indication: ANXIETY
     Dates: start: 20030822
  2. MIRTAZAPINE [Suspect]
     Indication: DEPRESSION
     Dates: start: 20030822

REACTIONS (2)
  - HEPATIC FAILURE [None]
  - HEPATITIS [None]
